FAERS Safety Report 20357288 (Version 1)
Quarter: 2022Q1

REPORT INFORMATION
  Report Type: Other
  Country: None (occurrence: TW)
  Receive Date: 20220120
  Receipt Date: 20220120
  Transmission Date: 20220423
  Serious: Yes (Other)
  Sender: FDA-Public Use
  Company Number: TW-B.Braun Medical Inc.-2124155

PATIENT
  Age: 18 Year
  Sex: Male

DRUGS (1)
  1. LIDOCAINE HYDROCHLORIDE [Suspect]
     Active Substance: LIDOCAINE HYDROCHLORIDE

REACTIONS (1)
  - Drug ineffective [Recovered/Resolved]
